FAERS Safety Report 6240355-9 (Version None)
Quarter: 2009Q2

REPORT INFORMATION
  Report Type: 
  Country: None (occurrence: None)
  Receive Date: 20090623
  Receipt Date: 20080818
  Transmission Date: 20091009
  Serious: No
  Sender: FDA-Public Use
  Company Number: US-ASTRAZENECA-2008UW16984

PATIENT
  Age: 78 Year
  Sex: Female
  Weight: 72.6 kg

DRUGS (7)
  1. PULMICORT RESPULES [Suspect]
     Indication: ASTHMA
     Route: 055
  2. CALCIUM [Concomitant]
  3. FELODIPINE [Concomitant]
  4. HYDROCHLOROTHIAZDE TAB [Concomitant]
  5. LEVOXYL [Concomitant]
  6. POTASSIUM CHLORIDE [Concomitant]
  7. ALBUTEROL [Concomitant]

REACTIONS (2)
  - FEELING JITTERY [None]
  - INSOMNIA [None]
